FAERS Safety Report 19453979 (Version 8)
Quarter: 2021Q4

REPORT INFORMATION
  Report Type: Report from Study
  Country: GB (occurrence: GB)
  Receive Date: 20210623
  Receipt Date: 20211228
  Transmission Date: 20220303
  Serious: Yes (Other)
  Sender: FDA-Public Use
  Company Number: NVSC2021GB019922

PATIENT
  Age: 11 Year
  Sex: Female

DRUGS (3)
  1. OMNITROPE [Suspect]
     Active Substance: SOMATROPIN
     Indication: Growth hormone deficiency
     Dosage: 0.8 MG, QD
     Route: 058
     Dates: start: 20210121
  2. OMNITROPE [Suspect]
     Active Substance: SOMATROPIN
     Dosage: 0.9 MG, QD
     Route: 058
     Dates: start: 20211118
  3. OMNITROPE [Suspect]
     Active Substance: SOMATROPIN
     Dosage: 40 MG, Q2W (FORTNIGHTLY)
     Route: 058

REACTIONS (14)
  - Syncope [Unknown]
  - Headache [Unknown]
  - Fatigue [Unknown]
  - Mood altered [Unknown]
  - Insomnia [Unknown]
  - Mood swings [Unknown]
  - Poor quality sleep [Unknown]
  - Abdominal pain [Unknown]
  - Nervousness [Unknown]
  - Dizziness [Unknown]
  - Illness [Unknown]
  - Injection site bruising [Unknown]
  - Eating disorder [Unknown]
  - Device leakage [Unknown]

NARRATIVE: CASE EVENT DATE: 20210601
